FAERS Safety Report 6039914-8 (Version None)
Quarter: 2009Q1

REPORT INFORMATION
  Report Type: 
  Country: None (occurrence: None)
  Receive Date: 20090116
  Receipt Date: 20090105
  Transmission Date: 20090719
  Serious: Yes (Death)
  Sender: FDA-Public Use
  Company Number: EG-ROCHE-607937

PATIENT

DRUGS (2)
  1. MYCOPHENOLATE MOFETIL [Suspect]
     Route: 065
  2. CYCLOSPORINE [Suspect]
     Dosage: THE DOSAGE OF CYCLOSPORINE WAS ADJUSTED TO ACHIEVE A TROUGH BLOOD LEVEL OF 62.4 TO 83.2 NMOL/L.
     Route: 065

REACTIONS (1)
  - HEPATITIS [None]
